FAERS Safety Report 13347994 (Version 2)
Quarter: 2017Q2

REPORT INFORMATION
  Report Type: Report from Study
  Country: None (occurrence: US)
  Receive Date: 20170318
  Receipt Date: 20170626
  Transmission Date: 20170830
  Serious: Yes (Disabling, Other)
  Sender: FDA-Public Use
  Company Number: US-ABBVIE-17K-163-1906831-00

PATIENT
  Sex: Female
  Weight: 70.37 kg

DRUGS (2)
  1. HUMIRA [Suspect]
     Active Substance: ADALIMUMAB
     Indication: COLITIS ULCERATIVE
     Route: 058
     Dates: start: 20161212, end: 201705
  2. HUMIRA [Suspect]
     Active Substance: ADALIMUMAB
     Indication: PSORIATIC ARTHROPATHY
     Route: 058
     Dates: start: 201705, end: 201706

REACTIONS (6)
  - Deafness [Recovered/Resolved]
  - Ear infection [Recovered/Resolved]
  - Tinnitus [Not Recovered/Not Resolved]
  - Sinus congestion [Recovered/Resolved]
  - Drug ineffective [Not Recovered/Not Resolved]
  - Tinnitus [Recovered/Resolved]

NARRATIVE: CASE EVENT DATE: 2017
